FAERS Safety Report 11734295 (Version 1)
Quarter: 2015Q4

REPORT INFORMATION
  Report Type: Spontaneous
  Country: CA (occurrence: CA)
  Receive Date: 20151113
  Receipt Date: 20151113
  Transmission Date: 20160304
  Serious: Yes (Other)
  Sender: FDA-Public Use
  Company Number: CA-TEVA-608017ACC

PATIENT
  Sex: Male
  Weight: 75 kg

DRUGS (1)
  1. CLONAZEPAM. [Suspect]
     Active Substance: CLONAZEPAM
     Indication: ANXIETY
     Dosage: 1 MILLIGRAM DAILY;
     Route: 048

REACTIONS (21)
  - Musculoskeletal stiffness [Unknown]
  - Anxiety [Unknown]
  - Irritability [Unknown]
  - Myalgia [Unknown]
  - Chest discomfort [Unknown]
  - Depersonalisation [Unknown]
  - Headache [Unknown]
  - Anhedonia [Unknown]
  - Cognitive disorder [Unknown]
  - Nausea [Unknown]
  - Suicidal ideation [Unknown]
  - Sleep disorder [Unknown]
  - Tension [Unknown]
  - Dysphoria [Unknown]
  - Derealisation [Unknown]
  - Drug withdrawal syndrome [Unknown]
  - Memory impairment [Unknown]
  - Chest pain [Unknown]
  - Hypoaesthesia [Unknown]
  - Palpitations [Unknown]
  - Paraesthesia [Unknown]
